FAERS Safety Report 4563935-5 (Version None)
Quarter: 2005Q1

REPORT INFORMATION
  Report Type: 
  Country: None (occurrence: None)
  Receive Date: 20050128
  Receipt Date: 20050118
  Transmission Date: 20050727
  Serious: Yes (Hospitalization)
  Sender: FDA-Public Use
  Company Number: DE-JNJFOC-20050104511

PATIENT
  Sex: Male

DRUGS (11)
  1. DURAGESIC [Suspect]
     Indication: PAIN
     Route: 062
  2. INSUMAN COMB 25 [Concomitant]
     Indication: DIABETES MELLITUS
     Route: 058
  3. APONAL [Concomitant]
     Indication: DEPRESSION
     Route: 049
  4. TEGRETOL [Concomitant]
     Indication: DIABETES MELLITUS
     Route: 049
  5. OMEP [Concomitant]
     Route: 049
  6. TOREM COR [Concomitant]
     Route: 049
  7. REMERGIL [Concomitant]
     Indication: DEPRESSION
     Route: 065
  8. MOVICOL [Concomitant]
     Route: 049
  9. MOVICOL [Concomitant]
     Route: 049
  10. MOVICOL [Concomitant]
     Route: 049
  11. MOVICOL [Concomitant]
     Route: 049

REACTIONS (1)
  - HERPES ZOSTER [None]
